FAERS Safety Report 5737653-1 (Version None)
Quarter: 2008Q2

REPORT INFORMATION
  Report Type: 
  Country: None (occurrence: None)
  Receive Date: 20080507
  Receipt Date: 20071211
  Transmission Date: 20081010
  Serious: Yes (Hospitalization)
  Sender: FDA-Public Use
  Company Number: 538190

PATIENT
  Age: 52 Year
  Sex: Male

DRUGS (7)
  1. NAPROSYN [Suspect]
     Indication: ARTHRALGIA
     Dosage: 800 MG DAILY 400 PER 2 DAY
  2. ENALAPRIL MALEATE [Suspect]
     Indication: HYPERTENSION
     Dosage: 10 MG DAILY
  3. PREDNISONE TAB [Concomitant]
  4. ROSIGLITAZONE [Concomitant]
  5. FLUTICASONE (FLUTICASONE PROPIONATE) [Concomitant]
  6. ALBUTEROL/IPRATROPIUM  (IPRATROPIUM SALBUTAMOL) [Concomitant]
  7. ACETAMINOPHEN [Concomitant]

REACTIONS (1)
  - RENAL FAILURE ACUTE [None]
